FAERS Safety Report 23114545 (Version 2)
Quarter: 2023Q4

REPORT INFORMATION
  Report Type: Spontaneous
  Country: US (occurrence: US)
  Receive Date: 20231027
  Receipt Date: 20231030
  Transmission Date: 20240110
  Serious: Yes (Other)
  Sender: FDA-Public Use
  Company Number: US-CSLP-26301319847-V12544015-100

PATIENT
  Age: 65 Year
  Sex: Male

DRUGS (5)
  1. ANTICOAGULANT SODIUM CITRATE [Suspect]
     Active Substance: SODIUM CITRATE
     Indication: Anticoagulant therapy
     Route: 050
     Dates: start: 20231017, end: 20231017
  2. OMEPRAZOLE [Concomitant]
     Active Substance: OMEPRAZOLE
     Indication: Dyspepsia
  3. GABAPENTIN [Concomitant]
     Active Substance: GABAPENTIN
     Indication: Restless legs syndrome
  4. CETIRIZINE [Concomitant]
     Active Substance: CETIRIZINE HYDROCHLORIDE
     Indication: Seasonal allergy
  5. VITAMIN D3 [Concomitant]
     Active Substance: CHOLECALCIFEROL
     Indication: Product used for unknown indication

REACTIONS (16)
  - Loss of consciousness [Recovered/Resolved]
  - Tetany [Recovered/Resolved]
  - Hypoaesthesia [Recovered/Resolved]
  - Abdominal discomfort [Recovered/Resolved]
  - Thirst [Recovered/Resolved]
  - Pain in extremity [Recovered/Resolved]
  - Pallor [Recovered/Resolved]
  - Nausea [Recovered/Resolved]
  - Epigastric discomfort [Recovered/Resolved]
  - Dizziness [Recovered/Resolved]
  - Paraesthesia [Recovered/Resolved]
  - Chest discomfort [Recovered/Resolved]
  - Feeling hot [Recovered/Resolved]
  - Abdominal pain [Recovered/Resolved]
  - Limb discomfort [Recovered/Resolved]
  - Arthralgia [Recovered/Resolved]

NARRATIVE: CASE EVENT DATE: 20231017
